FAERS Safety Report 5207734-X (Version None)
Quarter: 2006Q4

REPORT INFORMATION
  Report Type: 
  Country: None (occurrence: None)
  Receive Date: 20061030
  Receipt Date: 20060913
  Transmission Date: 20070319
  Serious: No
  Sender: FDA-Public Use
  Company Number: 2006CT000735

PATIENT
  Age: 66 Year
  Sex: Female
  Weight: 73.5 kg

DRUGS (10)
  1. VENTAVIS [Suspect]
     Indication: PULMONARY HYPERTENSION
     Dosage: 5 UG; 5XD; INH
     Route: 055
     Dates: start: 20060428
  2. ASCORBIC ACID [Concomitant]
  3. FERROUS SULFATE TAB [Concomitant]
  4. SPIRONOLACTONE [Concomitant]
  5. TOPROL-XL [Concomitant]
  6. ISOSORBIDE MONONITRATE [Concomitant]
  7. IRON DEXTRAN [Concomitant]
  8. ZYRTEC [Concomitant]
  9. PREVACID [Concomitant]
  10. TRACLEER [Concomitant]

REACTIONS (1)
  - PAIN IN EXTREMITY [None]
